FAERS Safety Report 5640806-4 (Version None)
Quarter: 2008Q1

REPORT INFORMATION
  Report Type: 
  Country: None (occurrence: None)
  Receive Date: 20080227
  Receipt Date: 20080218
  Transmission Date: 20080703
  Serious: Yes (Death, Hospitalization)
  Sender: FDA-Public Use
  Company Number: B0495961A

PATIENT
  Age: 56 Year
  Sex: Male
  Weight: 52 kg

DRUGS (6)
  1. ALKERAN [Suspect]
     Indication: STEM CELL TRANSPLANT
     Dosage: 200MGM2 PER DAY
     Route: 042
     Dates: start: 20030325, end: 20030326
  2. ALKERAN [Suspect]
     Indication: CHEMOTHERAPY
     Dosage: 12MG SEE DOSAGE TEXT
     Route: 048
     Dates: start: 19960209, end: 19981107
  3. ETOPOSIDE [Suspect]
     Indication: PERIPHERAL BLOOD STEM CELL APHERESIS
     Route: 042
     Dates: start: 19990112, end: 19990114
  4. VINDESINE SULFATE [Concomitant]
     Indication: CHEMOTHERAPY
     Dosage: 2MGM2 SEE DOSAGE TEXT
     Route: 065
     Dates: start: 19960209, end: 19981104
  5. PREDNISOLONE [Concomitant]
     Indication: CHEMOTHERAPY
     Dosage: 60MGM2 SEE DOSAGE TEXT
     Route: 065
     Dates: start: 19960209, end: 19981107
  6. RANIMUSTINE [Concomitant]
     Indication: CHEMOTHERAPY
     Dosage: 40MGM2 PER DAY
     Route: 065
     Dates: start: 19960209, end: 19981104

REACTIONS (2)
  - ACUTE MYELOID LEUKAEMIA [None]
  - AUTOSOMAL CHROMOSOME ANOMALY [None]
